FAERS Safety Report 9798726 (Version 1)
Quarter: 2014Q1

REPORT INFORMATION
  Report Type: Spontaneous
  Country: US (occurrence: US)
  Receive Date: 20140106
  Receipt Date: 20140106
  Transmission Date: 20141002
  Serious: No
  Sender: FDA-Public Use
  Company Number: US-GILEAD-2010-0029906

PATIENT
  Age: 69 Year
  Sex: Female
  Weight: 83.01 kg

DRUGS (8)
  1. LETAIRIS [Suspect]
     Indication: PULMONARY ARTERIAL HYPERTENSION
     Route: 048
     Dates: start: 20090519
  2. ALDACTONE [Concomitant]
  3. LASIX [Concomitant]
  4. CARDENE SR [Concomitant]
  5. LANOXIN [Concomitant]
  6. LEVOTHYROXINE [Concomitant]
  7. CALCIUM +D [Concomitant]
  8. GREEN TEA [Concomitant]

REACTIONS (1)
  - Fatigue [Unknown]
